FAERS Safety Report 11688831 (Version 15)
Quarter: 2021Q1

REPORT INFORMATION
  Report Type: Other
  Country: CA (occurrence: CA)
  Receive Date: 20151102
  Receipt Date: 20210210
  Transmission Date: 20210419
  Serious: Yes (Hospitalization, Other)
  Sender: FDA-Public Use
  Company Number: CA-ROCHE-1653300

PATIENT
  Age: 24 Year
  Sex: Female

DRUGS (14)
  1. XOLAIR [Suspect]
     Active Substance: OMALIZUMAB
     Dosage: UNK
     Route: 058
     Dates: start: 20160628
  2. CONCERTA [Suspect]
     Active Substance: METHYLPHENIDATE HYDROCHLORIDE
     Indication: PRODUCT USED FOR UNKNOWN INDICATION
     Route: 065
     Dates: end: 201412
  3. XOLAIR [Suspect]
     Active Substance: OMALIZUMAB
     Route: 058
     Dates: start: 20160308
  4. VENTOLIN [Concomitant]
     Active Substance: ALBUTEROL SULFATE
     Indication: PRODUCT USED FOR UNKNOWN INDICATION
     Route: 065
  5. ZENHALE [Concomitant]
     Active Substance: FORMOTEROL FUMARATE\MOMETASONE FUROATE
     Indication: PRODUCT USED FOR UNKNOWN INDICATION
     Route: 065
  6. XOLAIR [Suspect]
     Active Substance: OMALIZUMAB
     Route: 058
     Dates: start: 20140828
  7. CODEINE [Suspect]
     Active Substance: CODEINE
     Indication: PRODUCT USED FOR UNKNOWN INDICATION
     Route: 065
  8. XOLAIR [Suspect]
     Active Substance: OMALIZUMAB
     Route: 058
     Dates: start: 20160405
  9. VYVANSE [Suspect]
     Active Substance: LISDEXAMFETAMINE DIMESYLATE
     Indication: DISTURBANCE IN ATTENTION
     Route: 065
     Dates: start: 20150714, end: 20150812
  10. AMOXIL [Concomitant]
     Active Substance: AMOXICILLIN
     Indication: PRODUCT USED FOR UNKNOWN INDICATION
     Dosage: UNK
     Route: 065
  11. XOLAIR [Suspect]
     Active Substance: OMALIZUMAB
     Indication: ASTHMA
     Route: 058
     Dates: start: 20140219
  12. BIPHENTIN [Concomitant]
     Active Substance: METHYLPHENIDATE
     Indication: PRODUCT USED FOR UNKNOWN INDICATION
     Dosage: UNK
     Route: 065
  13. XOLAIR [Suspect]
     Active Substance: OMALIZUMAB
     Route: 058
     Dates: start: 20160505
  14. PULMICORT TURBUHALER [Concomitant]
     Active Substance: BUDESONIDE
     Indication: PRODUCT USED FOR UNKNOWN INDICATION
     Route: 065

REACTIONS (28)
  - Heart rate increased [Unknown]
  - Hypersensitivity [Unknown]
  - Productive cough [Recovering/Resolving]
  - Abdominal pain [Unknown]
  - Confusional state [Unknown]
  - Therapeutic response unexpected [Unknown]
  - Sinusitis [Recovering/Resolving]
  - Irritable bowel syndrome [Unknown]
  - Gingivitis [Unknown]
  - Eye allergy [Unknown]
  - Sinus congestion [Unknown]
  - Tooth resorption [Unknown]
  - Abscess oral [Unknown]
  - Diarrhoea [Unknown]
  - Somnolence [Unknown]
  - Tremor [Unknown]
  - Haematochezia [Unknown]
  - Ear pain [Unknown]
  - Gastrooesophageal reflux disease [Unknown]
  - Pain [Unknown]
  - Nausea [Recovering/Resolving]
  - Mood swings [Unknown]
  - Dizziness [Recovering/Resolving]
  - Pyrexia [Recovering/Resolving]
  - Bronchitis bacterial [Unknown]
  - Headache [Recovering/Resolving]
  - Skin plaque [Unknown]
  - Eczema [Unknown]

NARRATIVE: CASE EVENT DATE: 201404
